FAERS Safety Report 10178143 (Version 4)
Quarter: 2015Q3

REPORT INFORMATION
  Report Type: Report from Study
  Country: JP (occurrence: JP)
  Receive Date: 20140519
  Receipt Date: 20150730
  Transmission Date: 20151125
  Serious: Yes (Death)
  Sender: FDA-Public Use
  Company Number: JP-ROCHE-1402128

PATIENT
  Age: 70 Year
  Sex: Female

DRUGS (6)
  1. BAKTAR [Concomitant]
     Active Substance: SULFAMETHOXAZOLE\TRIMETHOPRIM
     Indication: INFECTION PROPHYLAXIS
     Dosage: 2 TABLETS /DAY,
     Route: 065
     Dates: start: 20140206, end: 20140408
  2. PREDONINE [Concomitant]
     Active Substance: PREDNISOLONE\PREDNISOLONE ACETATE\PREDNISOLONE SODIUM SUCCINATE
     Indication: STEROID THERAPY
     Dosage: (30 MG/ 25 MG/ 10 MG, DAILY
     Route: 048
     Dates: start: 20140207, end: 20140407
  3. URSO [Concomitant]
     Active Substance: URSODIOL
     Indication: AUTOIMMUNE HEPATITIS
     Route: 048
     Dates: start: 20091026, end: 20140425
  4. PREDONINE [Concomitant]
     Active Substance: PREDNISOLONE\PREDNISOLONE ACETATE\PREDNISOLONE SODIUM SUCCINATE
     Route: 042
     Dates: start: 20140408, end: 20140425
  5. RITUXIMAB [Suspect]
     Active Substance: RITUXIMAB
     Indication: MICROSCOPIC POLYANGIITIS
     Dosage: 520 MG/BODY
     Route: 042
     Dates: start: 20140218, end: 20140218
  6. SOL-MELCORT [Concomitant]
     Active Substance: METHYLPREDNISOLONE SODIUM SUCCINATE
     Indication: STEROID THERAPY
     Route: 065
     Dates: start: 20140204, end: 20140206

REACTIONS (3)
  - Bacterial sepsis [Fatal]
  - Gastrointestinal candidiasis [Fatal]
  - Cytomegalovirus infection [Fatal]

NARRATIVE: CASE EVENT DATE: 20140224
